FAERS Safety Report 20184378 (Version 1)
Quarter: 2021Q4

REPORT INFORMATION
  Report Type: Spontaneous
  Country: US (occurrence: US)
  Receive Date: 20211214
  Receipt Date: 20211214
  Transmission Date: 20220303
  Serious: No
  Sender: FDA-Public Use
  Company Number: US-REGENERON PHARMACEUTICALS, INC.-2021-10475

PATIENT

DRUGS (2)
  1. EYLEA [Suspect]
     Active Substance: AFLIBERCEPT
     Indication: Chorioretinal atrophy
     Dosage: UNK
     Dates: start: 20201111
  2. EYLEA [Suspect]
     Active Substance: AFLIBERCEPT
     Indication: Pseudoxanthoma elasticum

REACTIONS (2)
  - Off label use [Unknown]
  - Therapeutic response unexpected [Unknown]
